FAERS Safety Report 9774857 (Version 2)
Quarter: 2013Q4

REPORT INFORMATION
  Report Type: Spontaneous
  Country: US (occurrence: US)
  Receive Date: 20131220
  Receipt Date: 20131220
  Transmission Date: 20140711
  Serious: No
  Sender: FDA-Public Use
  Company Number: US-GLAXOSMITHKLINE-A0859145A

PATIENT
  Age: 37 Year
  Sex: Male

DRUGS (2)
  1. AVODART [Suspect]
     Indication: HAIR DISORDER
     Dosage: .5MG PER DAY
     Route: 048
     Dates: start: 200705, end: 201212
  2. MULTIVITAMIN [Concomitant]

REACTIONS (8)
  - Therapeutic response unexpected [Unknown]
  - Hair growth abnormal [Unknown]
  - Drug ineffective [Unknown]
  - Mania [Unknown]
  - Anger [Unknown]
  - Memory impairment [Unknown]
  - Irritability [Unknown]
  - Gynaecomastia [Unknown]
